FAERS Safety Report 17037991 (Version 3)
Quarter: 2020Q2

REPORT INFORMATION
  Report Type: Spontaneous
  Country: US (occurrence: US)
  Receive Date: 20191115
  Receipt Date: 20200515
  Transmission Date: 20200713
  Serious: Yes (Other)
  Sender: FDA-Public Use
  Company Number: US-CELGENEUS-USA-20191104161

PATIENT
  Sex: Female

DRUGS (1)
  1. POMALYST [Suspect]
     Active Substance: POMALIDOMIDE
     Indication: PLASMA CELL MYELOMA
     Dosage: 3 MILLIGRAM
     Route: 048
     Dates: start: 201905

REACTIONS (11)
  - Atrial fibrillation [Unknown]
  - Neuropathy peripheral [Unknown]
  - Muscle twitching [Unknown]
  - Dysphonia [Unknown]
  - Muscle spasms [Unknown]
  - Cataract [Unknown]
  - Alopecia [Unknown]
  - Peripheral swelling [Unknown]
  - Pain in extremity [Unknown]
  - Tremor [Unknown]
  - Visual impairment [Unknown]

NARRATIVE: CASE EVENT DATE: 2019
